FAERS Safety Report 25989526 (Version 1)
Quarter: 2025Q4

REPORT INFORMATION
  Report Type: Spontaneous
  Country: US (occurrence: US)
  Receive Date: 20251103
  Receipt Date: 20251103
  Transmission Date: 20260118
  Serious: No
  Sender: ABBVIE
  Company Number: US-ABBVIE-6521679

PATIENT
  Age: 35 Year
  Sex: Female
  Weight: 143 kg

DRUGS (20)
  1. UBRELVY [Suspect]
     Active Substance: UBROGEPANT
     Indication: Migraine
     Route: 048
  2. ZOFRAN [Suspect]
     Active Substance: ONDANSETRON HYDROCHLORIDE
     Indication: Nausea
     Route: 065
  3. REMODULIN [Suspect]
     Active Substance: TREPROSTINIL
     Indication: Pulmonary arterial hypertension
     Dosage: CONCENTRATION 10 MG/ML
     Route: 058
     Dates: start: 202505
  4. ORENITRAM [Suspect]
     Active Substance: TREPROSTINIL
     Indication: Pulmonary arterial hypertension
     Dosage: TIME INTERVAL: 0.33333333 DAYS: 5 MG?2025 END DATE
     Route: 048
     Dates: start: 20250416
  5. ORENITRAM [Suspect]
     Active Substance: TREPROSTINIL
     Indication: Pulmonary arterial hypertension
     Dosage: TIME INTERVAL: 0.33333333 DAYS: 0.25 MG?2025 END DATE
     Route: 048
     Dates: start: 20250416
  6. ORENITRAM [Suspect]
     Active Substance: TREPROSTINIL
     Indication: Pulmonary arterial hypertension
     Dosage: TIME INTERVAL: 0.33333333 DAYS
     Route: 048
     Dates: start: 2025
  7. OPSUMIT [Concomitant]
     Active Substance: MACITENTAN
     Indication: Product used for unknown indication
  8. TADALAFIL [Concomitant]
     Active Substance: TADALAFIL
     Indication: Product used for unknown indication
  9. SOTATERCEPT [Concomitant]
     Active Substance: SOTATERCEPT
     Indication: Product used for unknown indication
  10. TREPROSTINIL [Suspect]
     Active Substance: TREPROSTINIL
     Indication: Pulmonary arterial hypertension
     Dosage: TIME INTERVAL: 0.33333333 DAYS: START DATE 2025
     Route: 048
     Dates: end: 202505
  11. TREPROSTINIL [Suspect]
     Active Substance: TREPROSTINIL
     Indication: Pulmonary arterial hypertension
     Dosage: TIME INTERVAL: 0.33333333 DAYS: 3 TABLETS OF 5 MG AND 1 TABLET OF 0.25 MG
     Route: 048
     Dates: start: 202505, end: 202505
  12. TREPROSTINIL [Suspect]
     Active Substance: TREPROSTINIL
     Indication: Pulmonary arterial hypertension
     Dosage: TIME INTERVAL: 0.33333333 DAYS: END DATE 2025
     Route: 048
     Dates: start: 202505
  13. TREPROSTINIL [Suspect]
     Active Substance: TREPROSTINIL
     Indication: Pulmonary arterial hypertension
     Dosage: TIME INTERVAL: 0.33333333 DAYS: 1 TABLET OF 1 MG AND 2.5 MG EACH AND 2 TABLETS OF 5 MG
     Route: 048
     Dates: start: 2025, end: 2025
  14. TREPROSTINIL [Suspect]
     Active Substance: TREPROSTINIL
     Indication: Pulmonary arterial hypertension
     Dosage: TIME INTERVAL: 0.33333333 DAYS: 2 TABLETS OF 0.25 MG AND 5 MG EACH AND 1 TABLET OF 2.5 MG
     Route: 048
     Dates: start: 2025, end: 2025
  15. TREPROSTINIL [Suspect]
     Active Substance: TREPROSTINIL
     Indication: Pulmonary arterial hypertension
     Dosage: TIME INTERVAL: 0.33333333 DAYS: 2 TABLETS OF 5 MG AND 1 TABLET OF 1 MG AND 3 TABLETS OF 0.25 MG
     Route: 048
     Dates: start: 2025, end: 2025
  16. TREPROSTINIL [Suspect]
     Active Substance: TREPROSTINIL
     Indication: Pulmonary arterial hypertension
     Dosage: TIME INTERVAL: 0.33333333 DAYS
     Route: 048
     Dates: start: 2025, end: 2025
  17. TREPROSTINIL [Suspect]
     Active Substance: TREPROSTINIL
     Indication: Pulmonary arterial hypertension
     Dosage: TIME INTERVAL: 0.33333333 DAYS
     Route: 048
     Dates: start: 2025, end: 2025
  18. TREPROSTINIL [Suspect]
     Active Substance: TREPROSTINIL
     Indication: Pulmonary arterial hypertension
     Dosage: TIME INTERVAL: 0.33333333 DAYS
     Route: 048
     Dates: start: 2025, end: 2025
  19. TREPROSTINIL [Suspect]
     Active Substance: TREPROSTINIL
     Indication: Pulmonary arterial hypertension
     Dosage: TIME INTERVAL: 0.33333333 DAYS: (2 TABLETS OF 5 MG AND 1 TABLET OF 0.25 MG)
     Route: 048
     Dates: start: 202510
  20. TREPROSTINIL [Suspect]
     Active Substance: TREPROSTINIL
     Indication: Pulmonary arterial hypertension
     Dosage: STOP DATE 2025
     Route: 048
     Dates: start: 20250416

REACTIONS (8)
  - Vomiting [Unknown]
  - Nausea [Unknown]
  - Fatigue [Unknown]
  - Drug ineffective [Unknown]
  - Weight increased [Unknown]
  - Migraine [Unknown]
  - Dyspnoea [Recovered/Resolved]
  - Drug ineffective [Unknown]

NARRATIVE: CASE EVENT DATE: 20250101
